FAERS Safety Report 7427330-3 (Version None)
Quarter: 2011Q2

REPORT INFORMATION
  Report Type: 
  Country: None (occurrence: None)
  Receive Date: 20110420
  Receipt Date: 20110419
  Transmission Date: 20111010
  Serious: Yes (Life-Threatening, Other)
  Sender: FDA-Public Use
  Company Number: PHHO2011GB06288

PATIENT
  Sex: Female
  Weight: 64 kg

DRUGS (3)
  1. FTY 720 [Suspect]
     Indication: MULTIPLE SCLEROSIS
     Dosage: 0.5 MG, QD
     Route: 048
     Dates: start: 20110317, end: 20110407
  2. FTY 720 [Suspect]
     Dosage: NO TREATMENT
     Dates: start: 20110408, end: 20110408
  3. FTY 720 [Suspect]
     Dosage: 0.5 MG, QD
     Route: 048
     Dates: start: 20110409, end: 20110411

REACTIONS (3)
  - POSTERIOR REVERSIBLE ENCEPHALOPATHY SYNDROME [None]
  - STATUS EPILEPTICUS [None]
  - GRAND MAL CONVULSION [None]
